FAERS Safety Report 8002476-X (Version None)
Quarter: 2011Q4

REPORT INFORMATION
  Report Type: 
  Country: None (occurrence: None)
  Receive Date: 20111222
  Receipt Date: 20111212
  Transmission Date: 20120403
  Serious: Yes (Death)
  Sender: FDA-Public Use
  Company Number: JP-JNJFOC-20110905173

PATIENT
  Sex: Male

DRUGS (18)
  1. PREDNISOLONE [Suspect]
     Indication: COLITIS ULCERATIVE
     Route: 048
     Dates: start: 20110713, end: 20110719
  2. PREDNISOLONE [Suspect]
     Route: 048
     Dates: start: 20110720, end: 20110810
  3. PREDNISOLONE [Suspect]
     Route: 048
     Dates: start: 20110615, end: 20110628
  4. ALFAROL [Concomitant]
     Indication: PROPHYLAXIS
     Dosage: DOSE: 1RG
     Route: 048
     Dates: start: 20110615
  5. REMICADE [Suspect]
     Route: 042
     Dates: start: 20110630
  6. LANSOPRAZOLE [Concomitant]
     Indication: PROPHYLAXIS
     Route: 048
     Dates: start: 20110615
  7. PERINDOPRIL ERBUMINE [Concomitant]
     Indication: HYPERTENSION
     Route: 048
  8. PREDNISOLONE [Suspect]
     Route: 048
     Dates: start: 20110501
  9. PREDNISOLONE [Suspect]
     Route: 048
     Dates: start: 20110706, end: 20110712
  10. PREDNISOLONE [Suspect]
     Route: 048
     Dates: start: 20110811, end: 20110826
  11. ASPIRIN [Concomitant]
     Indication: MYOCARDIAL INFARCTION
     Route: 048
     Dates: start: 20110501
  12. REMICADE [Suspect]
     Route: 042
     Dates: start: 20110811
  13. CARVEDILOL [Concomitant]
     Indication: HYPERTENSION
     Route: 048
  14. CRESTOR [Concomitant]
     Indication: HYPERLIPIDAEMIA
     Route: 048
  15. REMICADE [Suspect]
     Indication: COLITIS ULCERATIVE
     Route: 042
     Dates: start: 20110714
  16. PREDNISOLONE [Suspect]
     Route: 048
     Dates: start: 20110629, end: 20110705
  17. PLAVIX [Concomitant]
     Indication: MYOCARDIAL INFARCTION
     Route: 048
     Dates: start: 20110501
  18. PENTASA [Concomitant]
     Indication: COLITIS ULCERATIVE
     Route: 048

REACTIONS (1)
  - PNEUMOCYSTIS JIROVECI PNEUMONIA [None]
